FAERS Safety Report 9835582 (Version 2)
Quarter: 2014Q1

REPORT INFORMATION
  Report Type: Spontaneous
  Country: NO (occurrence: NO)
  Receive Date: 20140122
  Receipt Date: 20140122
  Transmission Date: 20141002
  Serious: Yes (Death)
  Sender: FDA-Public Use
  Company Number: NO-TEVA-449104ISR

PATIENT
  Age: 20 Year
  Sex: Female

DRUGS (21)
  1. ORFIRIL [Suspect]
     Indication: DEPRESSION
     Dosage: UNKNOWN FORM
     Route: 065
  2. REMERON [Suspect]
     Indication: DEPRESSION
     Route: 065
  3. IMOVANE [Suspect]
     Indication: DEPRESSION
     Dosage: FORM:UNKNOWN
     Route: 048
  4. TRAMADOL [Suspect]
     Indication: DEPRESSION
     Route: 065
  5. ATARAX [Suspect]
     Indication: DEPRESSION
     Route: 065
  6. TRUXAL [Suspect]
     Indication: PRODUCT USED FOR UNKNOWN INDICATION
     Route: 065
  7. PINEX FORTE [Suspect]
     Indication: DEPRESSION
     Route: 065
  8. LAMICTAL [Suspect]
     Indication: DEPRESSION
     Dosage: STRENGTH: 25 MG, 50 MG, 100 MG
     Route: 065
  9. SEROQUEL [Suspect]
     Indication: DEPRESSION
     Route: 065
  10. SOBRIL [Suspect]
     Indication: PRODUCT USED FOR UNKNOWN INDICATION
     Route: 065
  11. NOBLIGAN [Suspect]
     Indication: DEPRESSION
     Route: 065
  12. CATAPRESAN [Suspect]
     Indication: DEPRESSION
     Route: 065
  13. DIACETYLMORPHINE [Suspect]
  14. CYANOCOBALAMIN [Concomitant]
  15. CIPRAMIL [Suspect]
     Indication: PRODUCT USED FOR UNKNOWN INDICATION
     Route: 065
     Dates: start: 2011
  16. NOZINAN [Suspect]
     Indication: DEPRESSION
     Route: 065
  17. OXYNORM [Suspect]
     Indication: DEPRESSION
     Route: 065
  18. CIPRALEX [Suspect]
     Indication: DEPRESSION
     Route: 065
  19. VIVAL [Suspect]
     Indication: DEPRESSION
     Route: 065
  20. SAROTEX [Suspect]
     Indication: DEPRESSION
     Route: 065
  21. RIVOTRIL [Suspect]
     Indication: DEPRESSION
     Dosage: ROCHE
     Route: 065

REACTIONS (4)
  - Completed suicide [Fatal]
  - Self injurious behaviour [Unknown]
  - Fall [Recovered/Resolved]
  - Overdose [Fatal]
